FAERS Safety Report 17824171 (Version 1)
Quarter: 2020Q2

REPORT INFORMATION
  Report Type: Spontaneous
  Country: US (occurrence: US)
  Receive Date: 20200522
  Receipt Date: 20200522
  Transmission Date: 20200714
  Serious: Yes (Other)
  Sender: FDA-Public Use
  Company Number: None

PATIENT
  Age: 86 Year
  Sex: Male
  Weight: 68.04 kg

DRUGS (1)
  1. ATORVASTATIN 40MG [Suspect]
     Active Substance: ATORVASTATIN
     Indication: MYOCARDIAL INFARCTION
     Dosage: ?          QUANTITY:1 PILL;?
     Route: 048
     Dates: start: 20191114, end: 20191224

REACTIONS (2)
  - Deafness [None]
  - Pyrexia [None]

NARRATIVE: CASE EVENT DATE: 201912
